FAERS Safety Report 8054992-2 (Version None)
Quarter: 2012Q1

REPORT INFORMATION
  Report Type: 
  Country: None (occurrence: None)
  Receive Date: 20120119
  Receipt Date: 20120112
  Transmission Date: 20120608
  Serious: Yes (Other)
  Sender: FDA-Public Use
  Company Number: JP-PFIZER INC-2011307941

PATIENT
  Age: 21 Month
  Sex: Female
  Weight: 10.5 kg

DRUGS (7)
  1. LASIX [Concomitant]
     Dosage: UNK
     Route: 048
     Dates: start: 20111003, end: 20111013
  2. NITROGLYCERIN [Concomitant]
     Dosage: UNK
     Route: 042
     Dates: start: 20111003, end: 20111007
  3. ALDACTONE [Concomitant]
     Dosage: UNK
     Route: 048
  4. ASPIRIN [Concomitant]
     Dosage: UNK
     Route: 048
  5. WARFARIN [Concomitant]
     Dosage: UNK
     Route: 048
  6. CEFAZOLIN [Concomitant]
     Dosage: UNK
     Route: 042
     Dates: start: 20111003, end: 20111008
  7. SILDENAFIL CITRATE [Suspect]
     Indication: PULMONARY ARTERIAL HYPERTENSION
     Dosage: 10 MG/DAY
     Dates: start: 20111006, end: 20111008

REACTIONS (1)
  - HEPATIC FUNCTION ABNORMAL [None]
